FAERS Safety Report 6286401-8 (Version None)
Quarter: 2009Q3

REPORT INFORMATION
  Report Type: 
  Country: None (occurrence: None)
  Receive Date: 20090727
  Receipt Date: 20090727
  Transmission Date: 20100115
  Serious: Yes (Other)
  Sender: FDA-Public Use
  Company Number: None

PATIENT
  Age: 61 Year
  Sex: Female
  Weight: 123 kg

DRUGS (16)
  1. LYRICA [Suspect]
     Indication: NEURALGIA
     Dosage: 100 MG PO TID; 150 MG PO TID
     Dates: start: 20080626, end: 20090106
  2. LYRICA [Suspect]
     Indication: NEURALGIA
     Dosage: 100 MG PO TID; 150 MG PO TID
     Dates: start: 20090106, end: 20090501
  3. BACLOFEN [Concomitant]
  4. CELEBREX [Concomitant]
  5. NEXIUM [Concomitant]
  6. AVAPRO [Concomitant]
  7. MULTIVITAMIN [Concomitant]
  8. POTASSIUM CHLORIDE [Concomitant]
  9. OXYCONTIN [Concomitant]
  10. MIRALAX [Concomitant]
  11. NEURONTIN [Concomitant]
  12. AMITZA [Concomitant]
  13. AMLODIPINE [Concomitant]
  14. CYMBALTA [Concomitant]
  15. NORTAPTYLINE [Concomitant]
  16. NORTROPTIPIME [Concomitant]

REACTIONS (1)
  - WEIGHT INCREASED [None]
